FAERS Safety Report 23149349 (Version 2)
Quarter: 2023Q4

REPORT INFORMATION
  Report Type: Spontaneous
  Country: US (occurrence: US)
  Receive Date: 20231106
  Receipt Date: 20231106
  Transmission Date: 20240110
  Serious: Yes (Other)
  Sender: FDA-Public Use
  Company Number: US-ALKERMES INC.-ALK-2023-004287

PATIENT
  Sex: Male

DRUGS (2)
  1. ARISTADA [Suspect]
     Active Substance: ARIPIPRAZOLE LAUROXIL
     Indication: Schizoaffective disorder bipolar type
     Dosage: UNK MILLIGRAM
     Route: 030
  2. ARISTADA INITIO [Suspect]
     Active Substance: ARIPIPRAZOLE LAUROXIL
     Indication: Schizoaffective disorder bipolar type
     Dosage: 675 MILLIGRAM, ONE TIME DOSE
     Route: 030

REACTIONS (5)
  - Diabetes mellitus [Unknown]
  - Drug screen positive [Unknown]
  - Gastrooesophageal reflux disease [Unknown]
  - Tachycardia [Unknown]
  - Off label use [Not Recovered/Not Resolved]
